FAERS Safety Report 9381668 (Version 2)
Quarter: 2013Q3

REPORT INFORMATION
  Report Type: Spontaneous
  Country: CN (occurrence: CN)
  Receive Date: 20130703
  Receipt Date: 20130710
  Transmission Date: 20140515
  Serious: No
  Sender: FDA-Public Use
  Company Number: CN-PFIZER INC-2013193556

PATIENT
  Age: 30 Year
  Sex: Male
  Weight: 51 kg

DRUGS (1)
  1. VFEND [Suspect]
     Indication: PNEUMONIA
     Dosage: 200 MG, 2X/DAY
     Route: 041
     Dates: start: 20120707, end: 20120807

REACTIONS (3)
  - Psychomotor hyperactivity [Recovering/Resolving]
  - Anger [Recovering/Resolving]
  - Visual impairment [Recovering/Resolving]
